FAERS Safety Report 21025752 (Version 1)
Quarter: 2022Q2

REPORT INFORMATION
  Report Type: Report from Study
  Country: RO (occurrence: RO)
  Receive Date: 20220630
  Receipt Date: 20220630
  Transmission Date: 20220720
  Serious: Yes (Hospitalization, Other)
  Sender: FDA-Public Use
  Company Number: RO-ABBVIE-22K-135-4433638-00

PATIENT
  Age: 65 Year
  Sex: Male

DRUGS (2)
  1. CARBIDOPA\LEVODOPA [Suspect]
     Active Substance: CARBIDOPA\LEVODOPA
     Indication: Parkinson^s disease
     Dosage: DM=14.00 DC=4.60 ED=2.00 NRED=0; DMN=0.00 DCN=2.20 EDN=2.20 NREDN=0
     Route: 050
     Dates: start: 20190513
  2. CARBIDOPA\LEVODOPA [Suspect]
     Active Substance: CARBIDOPA\LEVODOPA
     Route: 050

REACTIONS (8)
  - Pain in extremity [Recovered/Resolved]
  - Stoma site infection [Not Recovered/Not Resolved]
  - Purulent discharge [Not Recovered/Not Resolved]
  - Embedded device [Recovering/Resolving]
  - Device issue [Unknown]
  - Hyperglycaemia [Recovering/Resolving]
  - Hypernatraemia [Recovering/Resolving]
  - Abscess [Not Recovered/Not Resolved]

NARRATIVE: CASE EVENT DATE: 20220610
